FAERS Safety Report 5277143-6 (Version None)
Quarter: 2007Q1

REPORT INFORMATION
  Report Type: 
  Country: None (occurrence: None)
  Receive Date: 20061213
  Receipt Date: 20041006
  Transmission Date: 20070707
  Serious: No
  Sender: FDA-Public Use
  Company Number: 2004UW20820

PATIENT
  Age: 46 Year
  Sex: Male
  Weight: 69.399 kg

DRUGS (4)
  1. SEROQUEL [Suspect]
     Indication: PANIC DISORDER
     Dosage: 200 MG HS PO
     Route: 048
     Dates: start: 20040917
  2. SEROQUEL [Suspect]
     Indication: SCHIZOPHRENIA
     Dosage: 200 MG HS PO
     Route: 048
     Dates: start: 20040917
  3. GEODON [Concomitant]
  4. KLONOPIN [Concomitant]

REACTIONS (4)
  - GLAUCOMA [None]
  - PELVIC PAIN [None]
  - TINNITUS [None]
  - URINARY RETENTION [None]
